FAERS Safety Report 20322323 (Version 1)
Quarter: 2022Q1

REPORT INFORMATION
  Report Type: Spontaneous
  Country: US (occurrence: US)
  Receive Date: 20220111
  Receipt Date: 20220111
  Transmission Date: 20220423
  Serious: No
  Sender: FDA-Public Use
  Company Number: US-ABBVIE-21K-163-3968744-00

PATIENT
  Age: 53 Year
  Sex: Male

DRUGS (3)
  1. DUOPA [Suspect]
     Active Substance: CARBIDOPA\LEVODOPA
     Indication: Product used for unknown indication
     Route: 050
  2. DUOPA [Suspect]
     Active Substance: CARBIDOPA\LEVODOPA
  3. COVID-19 VACCINE [Concomitant]
     Indication: Product used for unknown indication

REACTIONS (3)
  - Device delivery system issue [Not Recovered/Not Resolved]
  - Malaise [Not Recovered/Not Resolved]
  - Drug ineffective [Unknown]

NARRATIVE: CASE EVENT DATE: 20210601
